FAERS Safety Report 8960394 (Version 1)
Quarter: 2012Q4

REPORT INFORMATION
  Report Type: 
  Country: US (occurrence: US)
  Receive Date: 20121211
  Receipt Date: 20121211
  Transmission Date: 20130627
  Serious: Yes (Other)
  Sender: FDA-Public Use
  Company Number: CHPA2012US024574

PATIENT
  Age: 53 Year
  Sex: Female

DRUGS (2)
  1. THERAFLU VAPOR PATCH [Suspect]
     Indication: BRONCHITIS
     Dosage: Unk, Q4H
     Route: 061
     Dates: start: 20121030
  2. THERAFLU VAPOR PATCH [Suspect]
     Dosage: Unk, PRN
     Route: 061
     Dates: start: 1987

REACTIONS (8)
  - Bronchitis [Recovered/Resolved]
  - Cough [Recovered/Resolved]
  - Vomiting [Recovered/Resolved]
  - Therapeutic response unexpected [Unknown]
  - Off label use [Unknown]
  - Overdose [Unknown]
  - Expired drug administered [Unknown]
  - Incorrect drug administration duration [Unknown]
